FAERS Safety Report 8932511 (Version 1)
Quarter: 2012Q4

REPORT INFORMATION
  Report Type: Spontaneous
  Country: KR (occurrence: None)
  Receive Date: 20121120
  Receipt Date: 20121120
  Transmission Date: 20130627
  Serious: Yes (Hospitalization)
  Sender: FDA-Public Use
  Company Number: FK201203366

PATIENT
  Age: 43 Year
  Sex: Female

DRUGS (4)
  1. FLUOROURACIL [Suspect]
     Indication: CERVIX CARCINOMA
  2. PACLITAXEL [Concomitant]
  3. CARBOPLATIN [Concomitant]
  4. CISPLATIN [Concomitant]

REACTIONS (3)
  - Leukoencephalopathy [None]
  - Tremor [None]
  - Dysarthria [None]
